FAERS Safety Report 19212483 (Version 2)
Quarter: 2021Q2

REPORT INFORMATION
  Report Type: Spontaneous
  Country: BR (occurrence: BR)
  Receive Date: 20210504
  Receipt Date: 20210507
  Transmission Date: 20210717
  Serious: Yes (Disabling)
  Sender: FDA-Public Use
  Company Number: BR-TAKEDA-2021TUS027220

PATIENT
  Age: 21 Year
  Sex: Female
  Weight: 87 kg

DRUGS (7)
  1. REVOC [RISPERIDONE] [Concomitant]
     Active Substance: RISPERIDONE
     Indication: DEPRESSION
  2. QUETROS [Concomitant]
     Active Substance: QUETIAPINE
     Indication: ANXIETY
     Dosage: 50 MILLIGRAM
  3. QUETROS [Concomitant]
     Active Substance: QUETIAPINE
     Indication: DEPRESSION
  4. VENVANSE [Suspect]
     Active Substance: LISDEXAMFETAMINE DIMESYLATE
     Dosage: 30 MILLIGRAM
     Route: 065
     Dates: start: 2021
  5. VENVANSE [Suspect]
     Active Substance: LISDEXAMFETAMINE DIMESYLATE
     Indication: ATTENTION DEFICIT HYPERACTIVITY DISORDER
     Dosage: UNK
     Route: 065
     Dates: start: 2015, end: 2020
  6. VENVANSE [Suspect]
     Active Substance: LISDEXAMFETAMINE DIMESYLATE
     Dosage: 50 MILLIGRAM, QD
     Route: 065
  7. REVOC [RISPERIDONE] [Concomitant]
     Active Substance: RISPERIDONE
     Indication: ANXIETY
     Dosage: 200 MILLIGRAM

REACTIONS (13)
  - Cognitive disorder [Unknown]
  - Terminal insomnia [Unknown]
  - Feeling abnormal [Unknown]
  - Memory impairment [Unknown]
  - Anxiety [Unknown]
  - Somnolence [Unknown]
  - Decreased appetite [Unknown]
  - Functional gastrointestinal disorder [Unknown]
  - General physical health deterioration [Unknown]
  - Heart rate increased [Unknown]
  - Binge eating [Unknown]
  - Drug ineffective [Unknown]
  - Disturbance in attention [Unknown]

NARRATIVE: CASE EVENT DATE: 202104
